FAERS Safety Report 4975084-2 (Version None)
Quarter: 2006Q2

REPORT INFORMATION
  Report Type: 
  Country: None (occurrence: None)
  Receive Date: 20060411
  Receipt Date: 20060329
  Transmission Date: 20061013
  Serious: Yes (Life-Threatening)
  Sender: FDA-Public Use
  Company Number: VISP-NO-0604S-0203

PATIENT
  Age: 42 Year
  Sex: Female
  Weight: 55 kg

DRUGS (3)
  1. VISIPAQUE [Suspect]
     Indication: DRUG USE FOR UNKNOWN INDICATION
     Dosage: NR, SINGLE DOSE, CORONARY
     Dates: start: 20060328, end: 20060328
  2. CLARITHROMYCIN [Concomitant]
  3. CEFEPIME [Concomitant]

REACTIONS (2)
  - ARTERIOSPASM CORONARY [None]
  - CONTRAST MEDIA REACTION [None]
